FAERS Safety Report 6395658-4 (Version None)
Quarter: 2009Q4

REPORT INFORMATION
  Report Type: 
  Country: None (occurrence: None)
  Receive Date: 20091009
  Receipt Date: 20091005
  Transmission Date: 20100525
  Serious: Yes (Death, Hospitalization)
  Sender: FDA-Public Use
  Company Number: US-AVENTIS-200921190GDDC

PATIENT
  Age: 86 Year
  Sex: Male
  Weight: 67.18 kg

DRUGS (7)
  1. TAXOTERE [Suspect]
     Route: 042
     Dates: start: 20090922, end: 20090922
  2. CODE UNBROKEN [Suspect]
     Route: 048
     Dates: start: 20090922, end: 20091001
  3. PREDNISONE [Suspect]
     Route: 048
     Dates: start: 20090922, end: 20091001
  4. DEXAMETHASONE 0.5MG TAB [Suspect]
     Dates: start: 20090922, end: 20090922
  5. COUMADIN [Concomitant]
     Route: 048
  6. ALLOPURINOL [Concomitant]
     Route: 048
  7. COMPAZINE [Concomitant]

REACTIONS (2)
  - DEATH [None]
  - SYNCOPE [None]
